FAERS Safety Report 10246889 (Version 1)
Quarter: 2014Q2

REPORT INFORMATION
  Report Type: Spontaneous
  Country: US (occurrence: None)
  Receive Date: 20140617
  Receipt Date: 20140617
  Transmission Date: 20141212
  Serious: Yes (Hospitalization)
  Sender: FDA-Public Use
  Company Number: None

PATIENT
  Age: 70 Year
  Sex: 0

DRUGS (2)
  1. OSMOPREP TABS [Suspect]
     Indication: COLONOSCOPY
     Dosage: 32 20...12 TAKEN BY MOUTH
     Route: 048
     Dates: start: 20140311, end: 20140311
  2. OSMOPREP TABS [Suspect]
     Indication: ENDOSCOPY
     Dosage: 32 20...12 TAKEN BY MOUTH
     Route: 048
     Dates: start: 20140311, end: 20140311

REACTIONS (5)
  - Urticaria [None]
  - Swollen tongue [None]
  - Swelling face [None]
  - Peripheral swelling [None]
  - Blood phosphorus decreased [None]
